FAERS Safety Report 16818890 (Version 5)
Quarter: 2020Q2

REPORT INFORMATION
  Report Type: Spontaneous
  Country: GB (occurrence: GB)
  Receive Date: 20190917
  Receipt Date: 20200428
  Transmission Date: 20200713
  Serious: Yes (Hospitalization, Other)
  Sender: FDA-Public Use
  Company Number: PHHY2019GB212250

PATIENT
  Age: 8 Year
  Sex: Male
  Weight: 33.8 kg

DRUGS (2)
  1. CANAKINUMAB. [Suspect]
     Active Substance: CANAKINUMAB
     Indication: STILL^S DISEASE
     Dosage: 1 DF, QW (4MG/KG)
     Route: 003
     Dates: start: 20151201
  2. ILARIS [Suspect]
     Active Substance: CANAKINUMAB
     Indication: STILL^S DISEASE
     Dosage: 4 MG/KG, 8 WEEKLY
     Route: 058
     Dates: start: 20151201

REACTIONS (2)
  - Transaminases increased [Unknown]
  - Hepatitis A [Recovered/Resolved]

NARRATIVE: CASE EVENT DATE: 20190426
